FAERS Safety Report 7461205-9 (Version None)
Quarter: 2011Q2

REPORT INFORMATION
  Report Type: 
  Country: None (occurrence: None)
  Receive Date: 20110505
  Receipt Date: 20110426
  Transmission Date: 20111010
  Serious: Yes (Other)
  Sender: FDA-Public Use
  Company Number: DE-ASTRAZENECA-2011SE24696

PATIENT
  Sex: Female

DRUGS (2)
  1. AT1 BLOCKER [Concomitant]
     Indication: HYPERTENSION
  2. SYMBICORT [Suspect]
     Route: 055

REACTIONS (2)
  - AMNESIA [None]
  - SYNCOPE [None]
